FAERS Safety Report 16007275 (Version 1)
Quarter: 2019Q1

REPORT INFORMATION
  Report Type: Report from Study
  Country: IE (occurrence: IE)
  Receive Date: 20190226
  Receipt Date: 20190226
  Transmission Date: 20190418
  Serious: Yes (Other)
  Sender: FDA-Public Use
  Company Number: IE-PFIZER INC-2019082084

PATIENT
  Age: 55 Year
  Sex: Female

DRUGS (3)
  1. INFLUENZA VACCINE [Suspect]
     Active Substance: INFLUENZA VIRUS VACCINE
     Route: 065
     Dates: start: 201810
  2. METHOTREXATE SODIUM. [Suspect]
     Active Substance: METHOTREXATE SODIUM
     Dosage: 20 MG, WEEKLY
     Route: 048
  3. HUMIRA [Suspect]
     Active Substance: ADALIMUMAB
     Indication: RHEUMATOID ARTHRITIS
     Dosage: 40 MG, EVERY 2 WEEKS
     Route: 058
     Dates: start: 20180824, end: 2018

REACTIONS (7)
  - Ear pain [Unknown]
  - Rheumatoid arthritis [Recovering/Resolving]
  - Ear discomfort [Unknown]
  - Pharyngitis [Recovering/Resolving]
  - Nasopharyngitis [Recovering/Resolving]
  - Depressed mood [Recovering/Resolving]
  - Ear infection [Recovering/Resolving]

NARRATIVE: CASE EVENT DATE: 2018
